FAERS Safety Report 17742241 (Version 1)
Quarter: 2020Q2

REPORT INFORMATION
  Report Type: Spontaneous
  Country: CA (occurrence: CA)
  Receive Date: 20200504
  Receipt Date: 20200504
  Transmission Date: 20200714
  Serious: Yes (Hospitalization, Other)
  Sender: FDA-Public Use
  Company Number: CA-TEVA-2020-CA-1230640

PATIENT
  Sex: Female

DRUGS (1)
  1. FENTANYL TEVA [Suspect]
     Active Substance: FENTANYL
     Route: 062

REACTIONS (1)
  - Drug withdrawal convulsions [Unknown]
